FAERS Safety Report 12398573 (Version 1)
Quarter: 2016Q2

REPORT INFORMATION
  Report Type: Spontaneous
  Country: US (occurrence: US)
  Receive Date: 20160524
  Receipt Date: 20160524
  Transmission Date: 20160815
  Serious: Yes (Death)
  Sender: FDA-Public Use
  Company Number: GXBR2015US001519

PATIENT
  Age: 57 Year
  Sex: Female
  Weight: 108.39 kg

DRUGS (5)
  1. CEFTRIAXONE. [Suspect]
     Active Substance: CEFTRIAXONE
     Indication: CHRONIC OBSTRUCTIVE PULMONARY DISEASE
     Dosage: 1 G, ONCE/SINGLE
     Route: 030
     Dates: start: 20131105
  2. CEFTRIAXONE. [Suspect]
     Active Substance: CEFTRIAXONE
     Indication: UPPER RESPIRATORY TRACT INFECTION
  3. LIDOCAINE. [Suspect]
     Active Substance: LIDOCAINE
     Indication: MEDICATION DILUTION
     Dosage: 1 %, ONCE/SINGLE
     Route: 030
     Dates: start: 20131105
  4. DEPO-MEDROL [Suspect]
     Active Substance: METHYLPREDNISOLONE ACETATE
     Indication: CHRONIC OBSTRUCTIVE PULMONARY DISEASE
     Dosage: 100 MG, ONCE/SINGLE
     Route: 030
     Dates: start: 20131105
  5. DEPO-MEDROL [Suspect]
     Active Substance: METHYLPREDNISOLONE ACETATE
     Indication: UPPER RESPIRATORY TRACT INFECTION

REACTIONS (12)
  - Tachypnoea [Fatal]
  - Chest pain [Fatal]
  - Cyanosis [Fatal]
  - Hypersensitivity [Fatal]
  - Dyspnoea [Fatal]
  - Respiratory tract oedema [Fatal]
  - Syncope [Fatal]
  - Anaphylactic shock [Fatal]
  - Vision blurred [Fatal]
  - Swelling [Fatal]
  - Unresponsive to stimuli [Fatal]
  - Pruritus [Fatal]

NARRATIVE: CASE EVENT DATE: 20131105
